FAERS Safety Report 5319302-X (Version None)
Quarter: 2007Q2

REPORT INFORMATION
  Report Type: 
  Country: None (occurrence: None)
  Receive Date: 20070508
  Receipt Date: 20070426
  Transmission Date: 20071010
  Serious: Yes (Hospitalization)
  Sender: FDA-Public Use
  Company Number: GBWYE491318APR07

PATIENT
  Sex: Female

DRUGS (4)
  1. EFFEXOR XR [Suspect]
     Indication: DEPRESSION
     Dosage: 150MG FREQUENCY UNKNOWN
     Dates: start: 20070218
  2. OMEPRAZOLE [Concomitant]
     Dosage: UNKNOWN
  3. PANADOL [Concomitant]
     Dosage: PRN
  4. DIAZEPAM [Concomitant]
     Dosage: 2MG PRN

REACTIONS (9)
  - ASTHENOPIA [None]
  - CHILLS [None]
  - FEELING ABNORMAL [None]
  - LACK OF SPONTANEOUS SPEECH [None]
  - NAUSEA [None]
  - PALLOR [None]
  - RESPIRATION ABNORMAL [None]
  - SENSORY DISTURBANCE [None]
  - TRISMUS [None]
